FAERS Safety Report 9324800 (Version 1)
Quarter: 2013Q2

REPORT INFORMATION
  Report Type: Spontaneous
  Country: CA (occurrence: CA)
  Receive Date: 20130603
  Receipt Date: 20130603
  Transmission Date: 20140414
  Serious: Yes (Hospitalization)
  Sender: FDA-Public Use
  Company Number: CA-BAXTER-2013BAX019843

PATIENT
  Age: 83 Year
  Sex: Female

DRUGS (3)
  1. DIANEAL PD4 GLUCOSE 1,36%, SOLUTION POUR DIALYSE P?RITON?AL EN POCHE [Suspect]
     Indication: PERITONEAL DIALYSIS
     Route: 033
  2. DIANEAL PD4 GLUCOSE 2,27% SOLUTION POUR DIALYSE P?RITON?AL EN POCHE [Suspect]
     Indication: PERITONEAL DIALYSIS
     Route: 033
  3. EXTRANEAL, SOLUTION POUR DIALYSE P?RITON?ALE [Suspect]
     Indication: PERITONEAL DIALYSIS
     Route: 033

REACTIONS (1)
  - Pancreatitis [Unknown]
